FAERS Safety Report 6569574-9 (Version None)
Quarter: 2010Q1

REPORT INFORMATION
  Report Type: 
  Country: None (occurrence: None)
  Receive Date: 20100204
  Receipt Date: 20100127
  Transmission Date: 20100710
  Serious: Yes (Other)
  Sender: FDA-Public Use
  Company Number: BE-BAYER-201013703GPV

PATIENT
  Sex: Female
  Weight: 45 kg

DRUGS (2)
  1. NEXAVAR [Suspect]
     Indication: DRUG USE FOR UNKNOWN INDICATION
     Route: 048
     Dates: start: 20090616
  2. BUSCOPAN [Concomitant]

REACTIONS (10)
  - ABDOMINAL DISTENSION [None]
  - ABDOMINAL PAIN [None]
  - BACK PAIN [None]
  - CHOLELITHIASIS [None]
  - DIARRHOEA [None]
  - HAEMOPTYSIS [None]
  - MUSCLE SPASMS [None]
  - NAUSEA [None]
  - SKIN REACTION [None]
  - WEIGHT DECREASED [None]
